FAERS Safety Report 9137821 (Version 1)
Quarter: 2013Q1

REPORT INFORMATION
  Report Type: Spontaneous
  Country: US (occurrence: US)
  Receive Date: 20130304
  Receipt Date: 20130304
  Transmission Date: 20140127
  Serious: No
  Sender: FDA-Public Use
  Company Number: US-ABBOTT-12P-163-0965677-00

PATIENT
  Sex: Male
  Weight: 104.42 kg

DRUGS (2)
  1. ANDROGEL 1% [Suspect]
     Indication: BLOOD TESTOSTERONE DECREASED
     Dosage: 4-5 PUMP ACTUATIONS PER DAY
     Dates: start: 2005
  2. BLOOD PRESSURE MEDICATION [Concomitant]
     Indication: HYPERTENSION

REACTIONS (2)
  - Dysphonia [Not Recovered/Not Resolved]
  - Drug administration error [Not Recovered/Not Resolved]
